FAERS Safety Report 7406666-6 (Version None)
Quarter: 2011Q2

REPORT INFORMATION
  Report Type: 
  Country: None (occurrence: None)
  Receive Date: 20110411
  Receipt Date: 20110331
  Transmission Date: 20111010
  Serious: Yes (Life-Threatening, Hospitalization, Disabling, Other)
  Sender: FDA-Public Use
  Company Number: JP-SANOFI-AVENTIS-2010SA072981

PATIENT
  Age: 47 Year
  Sex: Male
  Weight: 83 kg

DRUGS (39)
  1. CELESTAMINE TAB [Concomitant]
     Indication: PYREXIA
     Route: 048
     Dates: start: 20090715, end: 20100325
  2. INDISETRON [Concomitant]
     Indication: NAUSEA
     Route: 048
     Dates: start: 20090825
  3. MOBIC [Concomitant]
     Route: 048
     Dates: start: 20100511
  4. XELODA [Suspect]
     Indication: RECTAL CANCER
     Route: 048
     Dates: start: 20100119, end: 20100201
  5. AVASTIN [Suspect]
     Route: 041
     Dates: start: 20100413, end: 20100413
  6. DEXAMETHASONE SODIUM PHOSPHATE [Concomitant]
     Indication: PREMEDICATION
     Dosage: 8-6.6 MG
     Route: 041
     Dates: start: 20090629, end: 20101028
  7. CELESTAMINE TAB [Concomitant]
     Indication: RASH
     Route: 048
     Dates: start: 20090715, end: 20100325
  8. ELPLAT [Suspect]
     Route: 041
     Dates: start: 20100209, end: 20100209
  9. AVASTIN [Suspect]
     Indication: RECTAL CANCER
     Route: 041
     Dates: start: 20090714, end: 20090714
  10. AVASTIN [Suspect]
     Route: 041
     Dates: start: 20101028, end: 20101028
  11. CALCIUM LEVOFOLINATE [Concomitant]
     Indication: RECTAL CANCER
     Route: 041
     Dates: start: 20090629, end: 20090714
  12. CELESTAMINE TAB [Concomitant]
     Route: 048
     Dates: start: 20090715, end: 20100325
  13. ELPLAT [Suspect]
     Route: 041
     Dates: start: 20101028, end: 20101028
  14. GRANISETRON HCL [Concomitant]
     Indication: PREMEDICATION
     Route: 041
     Dates: start: 20100119, end: 20101028
  15. NERISONA [Concomitant]
     Indication: RASH
     Route: 061
     Dates: start: 20090715
  16. PLETAL [Concomitant]
     Indication: SUBCLAVIAN VEIN THROMBOSIS
     Route: 048
     Dates: start: 20090825, end: 20100412
  17. TAMSULOSIN HYDROCHLORIDE [Concomitant]
     Indication: DYSURIA
     Route: 048
     Dates: start: 20090908, end: 20090921
  18. ELPLAT [Suspect]
     Route: 041
     Dates: start: 20100119, end: 20100119
  19. ELPLAT [Suspect]
     Route: 041
     Dates: start: 20100413, end: 20100413
  20. FLUOROURACIL [Concomitant]
     Indication: RECTAL CANCER
     Route: 040
     Dates: start: 20090629, end: 20090714
  21. PROTECADIN [Concomitant]
     Indication: ABDOMINAL PAIN UPPER
     Route: 048
     Dates: start: 20100119, end: 20101027
  22. ELPLAT [Suspect]
     Route: 041
     Dates: start: 20090728, end: 20090728
  23. ZOMETA [Suspect]
     Indication: RECTAL CANCER
     Route: 041
     Dates: start: 20100914, end: 20101028
  24. FLUOROURACIL [Concomitant]
     Route: 041
     Dates: start: 20090629, end: 20090714
  25. FLUOROURACIL [Concomitant]
     Route: 040
     Dates: start: 20090728, end: 20090908
  26. FLUOROURACIL [Concomitant]
     Route: 041
     Dates: start: 20090728, end: 20090908
  27. DEXAMETHASONE SODIUM PHOSPHATE [Concomitant]
     Route: 041
     Dates: start: 20100119, end: 20101028
  28. ELPLAT [Suspect]
     Indication: RECTAL CANCER
     Route: 041
     Dates: start: 20090629, end: 20090629
  29. ELPLAT [Suspect]
     Route: 041
     Dates: start: 20101005, end: 20101005
  30. XELODA [Suspect]
     Route: 048
     Dates: start: 20100209, end: 20100405
  31. CALCIUM LEVOFOLINATE [Concomitant]
     Route: 041
     Dates: start: 20090728, end: 20090908
  32. POLARAMINE [Concomitant]
     Indication: PREMEDICATION
     Route: 041
     Dates: start: 20090714, end: 20101028
  33. CELESTAMINE TAB [Concomitant]
     Route: 048
     Dates: start: 20090715, end: 20100325
  34. LOXONIN [Concomitant]
     Indication: PYREXIA
     Dosage: UNK-60 MG
     Route: 048
     Dates: start: 20090908, end: 20100325
  35. PYRINAZIN [Concomitant]
     Indication: PYREXIA
     Route: 048
     Dates: start: 20100601, end: 20100601
  36. XELODA [Suspect]
     Route: 048
     Dates: start: 20100413, end: 20101010
  37. KYTRIL [Concomitant]
     Indication: PREMEDICATION
     Route: 041
     Dates: start: 20090629, end: 20090908
  38. BIFIDOBACTERIUM BIFIDUM/ENTEROCOCCUS FAECIUM [Concomitant]
     Route: 048
     Dates: start: 20100302
  39. WARFARIN [Concomitant]
     Indication: SUBCLAVIAN VEIN THROMBOSIS
     Route: 048
     Dates: start: 20100413, end: 20100930

REACTIONS (7)
  - PLATELET COUNT DECREASED [None]
  - RENAL FAILURE ACUTE [None]
  - HAEMATURIA [None]
  - THROMBOTIC MICROANGIOPATHY [None]
  - DISSEMINATED INTRAVASCULAR COAGULATION [None]
  - THROMBOSIS [None]
  - HAEMOLYTIC ANAEMIA [None]
